FAERS Safety Report 10349735 (Version 2)
Quarter: 2014Q3

REPORT INFORMATION
  Report Type: Report from Study
  Country: DE (occurrence: DE)
  Receive Date: 20140730
  Receipt Date: 20140730
  Transmission Date: 20150326
  Serious: Yes (Hospitalization)
  Sender: FDA-Public Use
  Company Number: PHHO2005DE15188

PATIENT
  Age: 73 Year
  Sex: Female
  Weight: 64.5 kg

DRUGS (1)
  1. SOM230 [Suspect]
     Active Substance: PASIREOTIDE
     Indication: PITUITARY-DEPENDENT CUSHING^S SYNDROME
     Dosage: 600 UG, TID
     Route: 058
     Dates: start: 20050526, end: 20050927

REACTIONS (4)
  - Hyperglycaemia [Recovering/Resolving]
  - Type 2 diabetes mellitus [Recovering/Resolving]
  - Urinary tract infection [Recovering/Resolving]
  - Dehydration [Recovering/Resolving]

NARRATIVE: CASE EVENT DATE: 20050927
